FAERS Safety Report 15756009 (Version 1)
Quarter: 2018Q4

REPORT INFORMATION
  Report Type: Spontaneous
  Country: JP (occurrence: JP)
  Receive Date: 20181224
  Receipt Date: 20181224
  Transmission Date: 20190205
  Serious: Yes (Other)
  Sender: FDA-Public Use
  Company Number: PHJP2018JP020926

PATIENT
  Age: 81 Year
  Sex: Female

DRUGS (2)
  1. NEORAL [Suspect]
     Active Substance: CYCLOSPORINE
     Indication: BEHCET^S SYNDROME
     Dosage: 150 MG, UNK
     Route: 048
     Dates: start: 2002
  2. NEORAL [Suspect]
     Active Substance: CYCLOSPORINE
     Dosage: 100 MG, UNK
     Route: 048

REACTIONS (5)
  - Fatigue [Unknown]
  - Conjunctival hyperaemia [Unknown]
  - Alopecia [Unknown]
  - Visual acuity reduced [Unknown]
  - Dementia [Unknown]
